FAERS Safety Report 7540217-0 (Version None)
Quarter: 2011Q2

REPORT INFORMATION
  Report Type: 
  Country: None (occurrence: None)
  Receive Date: 20110610
  Receipt Date: 20110601
  Transmission Date: 20111010
  Serious: Yes (Other)
  Sender: FDA-Public Use
  Company Number: JP-NOVOPROD-328617

PATIENT

DRUGS (6)
  1. OMEPRAZOLE [Concomitant]
     Dosage: UNKNOWN/UNKNOWN
     Route: 065
  2. CEFAMEZIN                          /00288502/ [Concomitant]
     Dosage: UNKNOWN/UNKNOWN
     Route: 065
  3. DECADRON [Concomitant]
     Dosage: UNKNOWN/UNKNOWN
     Route: 065
  4. INOVAN                             /00360702/ [Concomitant]
     Dosage: UNKNOWN/UNKNOWN
     Route: 065
  5. NOVOLIN R [Suspect]
     Indication: HYPERGLYCAEMIA
     Dosage: 2UT+1UT
     Route: 042
     Dates: start: 20110513, end: 20110513
  6. NOVORAPID CHU [Suspect]
     Indication: HYPERGLYCAEMIA
     Dosage: 0.3 UT
     Route: 058

REACTIONS (2)
  - BLOOD PRESSURE DECREASED [None]
  - ACIDOSIS [None]
